FAERS Safety Report 10690425 (Version 1)
Quarter: 2015Q1

REPORT INFORMATION
  Report Type: Spontaneous
  Country: US (occurrence: None)
  Receive Date: 20150102
  Receipt Date: 20150102
  Transmission Date: 20150720
  Serious: Yes (Hospitalization)
  Sender: FDA-Public Use
  Company Number: None

PATIENT
  Age: 73 Year
  Sex: Female
  Weight: 81.65 kg

DRUGS (1)
  1. TAMIFLU [Suspect]
     Active Substance: OSELTAMIVIR PHOSPHATE
     Indication: INFLUENZA
     Dates: start: 20141226, end: 20141230

REACTIONS (7)
  - Hallucination [None]
  - Fear [None]
  - Confusional state [None]
  - Nightmare [None]
  - Paranoia [None]
  - Renal impairment [None]
  - Swelling face [None]

NARRATIVE: CASE EVENT DATE: 20141226
